FAERS Safety Report 23109441 (Version 1)
Quarter: 2023Q4

REPORT INFORMATION
  Report Type: Spontaneous
  Country: None (occurrence: JP)
  Receive Date: 20231026
  Receipt Date: 20231026
  Transmission Date: 20240110
  Serious: Yes (Other)
  Sender: FDA-Public Use
  Company Number: JP-Jiangsu Hengrui Medicine Co., Ltd.-2147478

PATIENT
  Age: 68 Year
  Sex: Male
  Weight: 80 kg

DRUGS (6)
  1. DEXMEDETOMIDINE HYDROCHLORIDE [Suspect]
     Active Substance: DEXMEDETOMIDINE HYDROCHLORIDE
     Route: 017
  2. PENTAZOCINE [Concomitant]
     Active Substance: PENTAZOCINE
     Route: 017
  3. PROPOFOL [Concomitant]
     Active Substance: PROPOFOL
     Route: 017
  4. VALSARTAN [Concomitant]
     Active Substance: VALSARTAN
  5. AZELNIDIPINE [Concomitant]
     Active Substance: AZELNIDIPINE
  6. ROSUVASTATIN CALCIUM [Concomitant]
     Active Substance: ROSUVASTATIN CALCIUM

REACTIONS (1)
  - Arteriospasm coronary [Recovered/Resolved]
